FAERS Safety Report 8257167-7 (Version None)
Quarter: 2012Q1

REPORT INFORMATION
  Report Type: 
  Country: None (occurrence: None)
  Receive Date: 20120330
  Receipt Date: 20120330
  Transmission Date: 20120608
  Serious: Yes (Hospitalization)
  Sender: FDA-Public Use
  Company Number: None

PATIENT
  Sex: Female
  Weight: 48 kg

DRUGS (17)
  1. POTASSIUM [Concomitant]
  2. CALCIUM W/D [Concomitant]
  3. FOLIC ACID [Concomitant]
  4. PHENYTOIN [Concomitant]
  5. TARCEVA [Concomitant]
  6. ALLEGRA [Concomitant]
  7. ARIMIDEX [Concomitant]
  8. BETAPACE [Concomitant]
  9. WELLBUTRIN SR [Concomitant]
  10. DEXAMETHASONE [Concomitant]
  11. PRADAXA [Suspect]
     Indication: ATRIAL FIBRILLATION
     Dosage: 150 MG
     Dates: start: 20110501, end: 20110821
  12. PEPCID AC [Concomitant]
  13. CARDIZEMED [Concomitant]
  14. NORCO [Concomitant]
  15. LISINOPRIL [Concomitant]
  16. PROAIR HFA [Concomitant]
  17. XANAX [Concomitant]

REACTIONS (2)
  - RECTAL HAEMORRHAGE [None]
  - GASTROINTESTINAL HAEMORRHAGE [None]
